FAERS Safety Report 6537834-3 (Version None)
Quarter: 2010Q1

REPORT INFORMATION
  Report Type: 
  Country: None (occurrence: None)
  Receive Date: 20100114
  Receipt Date: 20100111
  Transmission Date: 20100710
  Serious: Yes (Life-Threatening)
  Sender: FDA-Public Use
  Company Number: HR-ASTRAZENECA-2010SE01086

PATIENT
  Sex: Male

DRUGS (3)
  1. QUETIAPINE FUMARATE [Suspect]
     Dosage: CROSS TITRATION WITH CLOZAPINE
  2. CLOZAPINE [Suspect]
     Dosage: CROSS TITRATION WITH QUETIAPINE
  3. BROMOCRIPTINE [Concomitant]

REACTIONS (1)
  - SEROTONIN SYNDROME [None]
